FAERS Safety Report 5427915-X (Version None)
Quarter: 2007Q3

REPORT INFORMATION
  Report Type: 
  Country: None (occurrence: None)
  Receive Date: 20070828
  Receipt Date: 20070813
  Transmission Date: 20080115
  Serious: Yes (Hospitalization, Disabling, Other)
  Sender: FDA-Public Use
  Company Number: US-PFIZER INC-2007044605

PATIENT
  Sex: Male
  Weight: 142.9 kg

DRUGS (1)
  1. CELEBREX [Suspect]
     Indication: BACK PAIN

REACTIONS (3)
  - ANXIETY [None]
  - DEPRESSION [None]
  - HYPERTENSION [None]
